FAERS Safety Report 4578619-7 (Version None)
Quarter: 2005Q1

REPORT INFORMATION
  Report Type: 
  Country: None (occurrence: None)
  Receive Date: 20050209
  Receipt Date: 20050202
  Transmission Date: 20050727
  Serious: Yes (Life-Threatening, Hospitalization, Other)
  Sender: FDA-Public Use
  Company Number: HQWYE894514MAY04

PATIENT
  Sex: Male

DRUGS (3)
  1. PANTOPRAZOLE SODIUM [Suspect]
     Indication: GASTROENTERITIS HELICOBACTER
     Dosage: 40 MG 2X PER 1 DAY ORAL
     Route: 048
     Dates: start: 20040430, end: 20040506
  2. AMOXICILLIN [Suspect]
     Indication: GASTROENTERITIS HELICOBACTER
     Dosage: 1000 MG 2X PER 1 DAY ORAL
     Route: 048
     Dates: start: 20040430, end: 20040506
  3. CLARITHROMYCIN [Suspect]
     Indication: GASTROENTERITIS HELICOBACTER
     Dosage: 500 MG 2X PER 1 DAY ORAL
     Route: 048
     Dates: start: 20040430, end: 20040506

REACTIONS (3)
  - DEPRESSION SUICIDAL [None]
  - GENERAL PHYSICAL CONDITION ABNORMAL [None]
  - TREMOR [None]
